FAERS Safety Report 7264463-9 (Version None)
Quarter: 2011Q1

REPORT INFORMATION
  Report Type: 
  Country: None (occurrence: None)
  Receive Date: 20110131
  Receipt Date: 20110122
  Transmission Date: 20110831
  Serious: Yes (Other)
  Sender: FDA-Public Use
  Company Number: US-US-EMD SERONO, INC.-7037606

PATIENT
  Sex: Female

DRUGS (10)
  1. AGGRENOX [Concomitant]
  2. OMEPRAZOLE [Concomitant]
  3. ZOLPIDEM [Concomitant]
  4. SIMVASTATIN [Concomitant]
  5. PRIMIDONE [Concomitant]
  6. PERPHENAZINE [Concomitant]
  7. PAROXETINE HCL [Concomitant]
  8. REBIF [Suspect]
     Route: 058
  9. REBIF [Suspect]
     Indication: MULTIPLE SCLEROSIS
     Route: 058
     Dates: start: 20101201
  10. METANX [Concomitant]

REACTIONS (2)
  - HALLUCINATION, AUDITORY [None]
  - SUICIDAL IDEATION [None]
